FAERS Safety Report 5578581-4 (Version None)
Quarter: 2007Q4

REPORT INFORMATION
  Report Type: 
  Country: None (occurrence: None)
  Receive Date: 20071227
  Receipt Date: 20070307
  Transmission Date: 20080405
  Serious: Yes (Other)
  Sender: FDA-Public Use
  Company Number: 2006VX001498

PATIENT
  Age: 70 Year
  Sex: Female
  Weight: 69.9 kg

DRUGS (5)
  1. TASMAR [Suspect]
     Indication: PARKINSON'S DISEASE
     Dosage: 100 MG; TID
     Dates: start: 20060223, end: 20060815
  2. PROPRANOLOL [Concomitant]
  3. CLONAZEPAM [Concomitant]
  4. ZOPICLONE [Concomitant]
  5. CLEXANE [Concomitant]

REACTIONS (2)
  - ALANINE AMINOTRANSFERASE INCREASED [None]
  - GENERAL PHYSICAL HEALTH DETERIORATION [None]
